FAERS Safety Report 5501045-0 (Version None)
Quarter: 2007Q4

REPORT INFORMATION
  Report Type: 
  Country: None (occurrence: None)
  Receive Date: 20071029
  Receipt Date: 20071015
  Transmission Date: 20080405
  Serious: Yes (Congenital Anomaly)
  Sender: FDA-Public Use
  Company Number: GB-RANBAXY-2007RR-10746

PATIENT

DRUGS (1)
  1. CIPROFLOXACIN [Suspect]
     Dosage: 250 MG, BID
     Route: 064
     Dates: start: 20070215, end: 20070219

REACTIONS (1)
  - ABNORMAL PALMAR/PLANTAR CREASES [None]
